FAERS Safety Report 17953500 (Version 1)
Quarter: 2020Q2

REPORT INFORMATION
  Report Type: Spontaneous
  Country: US (occurrence: US)
  Receive Date: 20200628
  Receipt Date: 20200628
  Transmission Date: 20200714
  Serious: No
  Sender: FDA-Public Use
  Company Number: US-ASTRAZENECA-2020SE78490

PATIENT
  Sex: Female

DRUGS (2)
  1. POVIDONE [Suspect]
     Active Substance: POVIDONE
     Route: 065
  2. ROSUVASTATIN. [Suspect]
     Active Substance: ROSUVASTATIN
     Indication: BLOOD CHOLESTEROL ABNORMAL
     Route: 048
     Dates: start: 202006

REACTIONS (3)
  - Erythema [Unknown]
  - Allergic reaction to excipient [Unknown]
  - Rash erythematous [Unknown]
